FAERS Safety Report 12039042 (Version 1)
Quarter: 2016Q1

REPORT INFORMATION
  Report Type: Spontaneous
  Country: US (occurrence: None)
  Receive Date: 20160205
  Receipt Date: 20160205
  Transmission Date: 20160526
  Serious: Yes (Hospitalization)
  Sender: FDA-Public Use
  Company Number: None

PATIENT
  Age: 74 Year
  Sex: Male
  Weight: 70.5 kg

DRUGS (1)
  1. FERUMOXYTOL [Suspect]
     Active Substance: FERUMOXYTOL
     Indication: ANAEMIA
     Route: 042
     Dates: start: 20160113, end: 20160113

REACTIONS (8)
  - Respiratory depression [None]
  - Nausea [None]
  - Depression [None]
  - Hypotension [None]
  - Dyspnoea [None]
  - Confusional state [None]
  - Dizziness [None]
  - Vomiting [None]

NARRATIVE: CASE EVENT DATE: 20160113
